FAERS Safety Report 8560027-5 (Version None)
Quarter: 2012Q3

REPORT INFORMATION
  Report Type: 
  Country: None (occurrence: None)
  Receive Date: 20120802
  Receipt Date: 20120730
  Transmission Date: 20120928
  Serious: Yes (Hospitalization, Disabling, Other)
  Sender: FDA-Public Use
  Company Number: US-PFIZER INC-2012105225

PATIENT
  Sex: Male

DRUGS (1)
  1. CHANTIX [Suspect]
     Indication: SMOKING CESSATION THERAPY
     Dosage: STARTER PACK, UNK
     Route: 048
     Dates: start: 20111014, end: 20111105

REACTIONS (5)
  - CONVULSION [None]
  - TREMOR [None]
  - CONFUSIONAL STATE [None]
  - EPILEPSY [None]
  - COGNITIVE DISORDER [None]
